FAERS Safety Report 7517245-4 (Version None)
Quarter: 2011Q2

REPORT INFORMATION
  Report Type: 
  Country: None (occurrence: None)
  Receive Date: 20110601
  Receipt Date: 20110518
  Transmission Date: 20111010
  Serious: Yes (Congenital Anomaly, Other)
  Sender: FDA-Public Use
  Company Number: FR-AMGEN-FRASP2011024860

PATIENT

DRUGS (1)
  1. ENBREL [Suspect]
     Indication: PRODUCT USED FOR UNKNOWN INDICATION
     Dosage: UNK
     Route: 064
     Dates: start: 20050101, end: 20091001

REACTIONS (5)
  - DRUG EXPOSURE DURING PREGNANCY [None]
  - CYTOMEGALOVIRUS INFECTION [None]
  - CONGENITAL ANOMALY [None]
  - RETROGNATHIA [None]
  - FOETAL GROWTH RESTRICTION [None]
